FAERS Safety Report 8026089-9 (Version None)
Quarter: 2012Q1

REPORT INFORMATION
  Report Type: 
  Country: None (occurrence: None)
  Receive Date: 20120105
  Receipt Date: 20110602
  Transmission Date: 20120608
  Serious: No
  Sender: FDA-Public Use
  Company Number: US-ABBOTT-11P-163-0730573-00

PATIENT
  Sex: Female
  Weight: 56.75 kg

DRUGS (6)
  1. ESTRADIOL [Concomitant]
     Indication: HORMONE REPLACEMENT THERAPY
  2. PROGESTERONE [Concomitant]
     Indication: HORMONE REPLACEMENT THERAPY
  3. ADVAIR DISKUS 100/50 [Concomitant]
     Indication: ASTHMA
     Route: 055
  4. SYNTHROID [Suspect]
     Indication: HYPOTHYROIDISM
     Dosage: ALTERNATES 100 MG EVERY OTHER DAY WITH 50 MG.
     Route: 048
     Dates: start: 20100501
  5. OXYCONTIN [Concomitant]
     Indication: INTERVERTEBRAL DISC PROTRUSION
     Route: 048
  6. FELODIPINE [Concomitant]
     Indication: HYPERTENSION
     Route: 048

REACTIONS (2)
  - ALOPECIA [None]
  - DEPRESSION [None]
